FAERS Safety Report 4452370-6 (Version None)
Quarter: 2004Q3

REPORT INFORMATION
  Report Type: 
  Country: None (occurrence: None)
  Receive Date: 20040915
  Receipt Date: 20040902
  Transmission Date: 20050211
  Serious: Yes (Hospitalization)
  Sender: FDA-Public Use
  Company Number: FRP04000733

PATIENT
  Age: 76 Year
  Sex: Female

DRUGS (5)
  1. DIDRONEL [Suspect]
     Indication: OSTEOPOROSIS
     Dosage: ORAL
     Route: 048
     Dates: end: 20040326
  2. CHLORMADINONE ACETATE TAB [Suspect]
     Dosage: ORAL
     Route: 048
     Dates: end: 20040326
  3. ESTRADIOL [Suspect]
     Dates: end: 20040326
  4. PAROXETINE HCL [Suspect]
     Dosage: ORAL
     Route: 048
     Dates: end: 20040326
  5. AMLODIPINE BESYLATE [Concomitant]

REACTIONS (5)
  - ABASIA [None]
  - APRAXIA [None]
  - BALINT'S SYNDROME [None]
  - CEREBRAL INFARCTION [None]
  - MEMORY IMPAIRMENT [None]
